FAERS Safety Report 9686564 (Version 3)
Quarter: 2013Q4

REPORT INFORMATION
  Report Type: Report from Study
  Country: US (occurrence: US)
  Receive Date: 20131113
  Receipt Date: 20131217
  Transmission Date: 20140711
  Serious: Yes (Other)
  Sender: FDA-Public Use
  Company Number: US-GLAXOSMITHKLINE-A0625915A

PATIENT
  Age: 60 Year
  Sex: Male

DRUGS (25)
  1. AVANDIA [Suspect]
     Indication: TYPE 1 DIABETES MELLITUS
     Dosage: 4MG TWICE PER DAY
     Route: 048
     Dates: start: 2006
  2. AVANDARYL [Suspect]
     Dosage: 2TABS PER DAY
     Route: 048
     Dates: start: 2005, end: 2005
  3. ACTOS [Suspect]
     Indication: TYPE 1 DIABETES MELLITUS
     Route: 048
  4. AMARYL [Concomitant]
  5. INSULIN [Concomitant]
  6. METFORMIN [Concomitant]
  7. LEVITRA [Concomitant]
  8. CRESTOR [Concomitant]
  9. PRILOSEC [Concomitant]
  10. ZESTRIL [Concomitant]
  11. PLAVIX [Concomitant]
  12. LASIX [Concomitant]
  13. SPIRONOLACTONE [Concomitant]
  14. AZITHROMYCIN [Concomitant]
  15. TRAMADOL [Concomitant]
  16. NITROSTAT [Concomitant]
  17. ECOTRIN [Concomitant]
  18. FLAXSEED [Concomitant]
  19. VITAMIN C [Concomitant]
  20. VITAMIN B COMPLEX [Concomitant]
  21. CO Q10 [Concomitant]
  22. BILBERRY [Concomitant]
  23. CENTRUM SILVER [Concomitant]
  24. VITAMIN E [Concomitant]
  25. CITRUCEL [Concomitant]

REACTIONS (3)
  - Cardiac failure congestive [Unknown]
  - Oedema [Unknown]
  - Dyspnoea exertional [Unknown]
